FAERS Safety Report 17894355 (Version 2)
Quarter: 2021Q2

REPORT INFORMATION
  Report Type: Other
  Country: GB (occurrence: GB)
  Receive Date: 20200615
  Receipt Date: 20210505
  Transmission Date: 20210717
  Serious: Yes (Other)
  Sender: FDA-Public Use
  Company Number: GB-ASTELLAS-2020US019911

PATIENT
  Age: 84 Year
  Sex: Male

DRUGS (10)
  1. TAMSULOSIN [Concomitant]
     Active Substance: TAMSULOSIN
     Indication: PRODUCT USED FOR UNKNOWN INDICATION
     Route: 065
     Dates: start: 20200518, end: 20200617
  2. SOLIFENACIN [Suspect]
     Active Substance: SOLIFENACIN
     Indication: BLADDER IRRITATION
     Route: 048
     Dates: start: 20200501
  3. LERCANIDIPINE HYDROCHLORIDE [Concomitant]
     Active Substance: LERCANIDIPINE HYDROCHLORIDE
     Indication: PRODUCT USED FOR UNKNOWN INDICATION
     Route: 065
     Dates: start: 20190531
  4. PREDNISOLONE. [Concomitant]
     Active Substance: PREDNISOLONE
     Indication: PRODUCT USED FOR UNKNOWN INDICATION
     Route: 065
     Dates: start: 20191024
  5. SOLIFENACIN [Suspect]
     Active Substance: SOLIFENACIN
     Route: 048
     Dates: start: 20200509, end: 20200516
  6. CANDESARTAN. [Concomitant]
     Active Substance: CANDESARTAN
     Indication: PRODUCT USED FOR UNKNOWN INDICATION
     Route: 065
     Dates: start: 20190531
  7. CALCIUM CARBONATE. [Concomitant]
     Active Substance: CALCIUM CARBONATE
     Indication: PRODUCT USED FOR UNKNOWN INDICATION
     Route: 065
     Dates: start: 20190531
  8. BENDROFLUMETHIAZIDE [Concomitant]
     Active Substance: BENDROFLUMETHIAZIDE
     Indication: PRODUCT USED FOR UNKNOWN INDICATION
     Route: 065
     Dates: start: 20190531
  9. OXYBUTYNIN. [Concomitant]
     Active Substance: OXYBUTYNIN CHLORIDE
     Indication: PRODUCT USED FOR UNKNOWN INDICATION
     Route: 065
     Dates: start: 20200221, end: 20200501
  10. ATENOLOL. [Concomitant]
     Active Substance: ATENOLOL
     Indication: PRODUCT USED FOR UNKNOWN INDICATION
     Dosage: 1 DF, ONCE DAILY (MORNING)
     Route: 065
     Dates: start: 20190531

REACTIONS (6)
  - Hepatitis cholestatic [Recovering/Resolving]
  - Jaundice [Recovered/Resolved]
  - Liver injury [Unknown]
  - Product use in unapproved indication [Unknown]
  - Lethargy [Recovering/Resolving]
  - Liver function test abnormal [Unknown]

NARRATIVE: CASE EVENT DATE: 20200501
